FAERS Safety Report 23493744 (Version 1)
Quarter: 2024Q1

REPORT INFORMATION
  Report Type: Spontaneous
  Country: CN (occurrence: CN)
  Receive Date: 20240207
  Receipt Date: 20240207
  Transmission Date: 20240410
  Serious: Yes (Other)
  Sender: FDA-Public Use
  Company Number: CN-009507513-2402CHN001654

PATIENT
  Age: 59 Year
  Sex: Male
  Weight: 62.5 kg

DRUGS (1)
  1. KEYTRUDA [Suspect]
     Active Substance: PEMBROLIZUMAB
     Indication: Lung neoplasm malignant
     Route: 041
     Dates: start: 20240123, end: 20240123

REACTIONS (9)
  - Hypersensitivity [Recovering/Resolving]
  - Electrocardiogram QT prolonged [Unknown]
  - Chills [Unknown]
  - Palpitations [Unknown]
  - Vomiting [Unknown]
  - Cyanosis [Unknown]
  - Sinus tachycardia [Unknown]
  - Bundle branch block right [Unknown]
  - Electrocardiogram T wave amplitude decreased [Unknown]

NARRATIVE: CASE EVENT DATE: 20240123
